FAERS Safety Report 6538669-8 (Version None)
Quarter: 2010Q1

REPORT INFORMATION
  Report Type: 
  Country: None (occurrence: None)
  Receive Date: 20100115
  Receipt Date: 20100111
  Transmission Date: 20100710
  Serious: Yes (Hospitalization)
  Sender: FDA-Public Use
  Company Number: US-BIOGENIDEC-2009BI039193

PATIENT
  Age: 54 Year
  Sex: Female

DRUGS (3)
  1. AVONEX [Suspect]
     Indication: MULTIPLE SCLEROSIS
     Route: 030
     Dates: start: 20040117, end: 20061002
  2. AVONEX [Suspect]
     Route: 030
     Dates: start: 20070126, end: 20070801
  3. AVONEX [Suspect]
     Route: 030
     Dates: start: 20080323, end: 20090904

REACTIONS (5)
  - ACUTE MYOCARDIAL INFARCTION [None]
  - ANXIETY [None]
  - CARDIAC PROCEDURE COMPLICATION [None]
  - DEPRESSION [None]
  - MYOCARDIAL INFARCTION [None]
